FAERS Safety Report 5347503-3 (Version None)
Quarter: 2007Q2

REPORT INFORMATION
  Report Type: 
  Country: None (occurrence: None)
  Receive Date: 20070606
  Receipt Date: 20070525
  Transmission Date: 20071010
  Serious: Yes (Other)
  Sender: FDA-Public Use
  Company Number: PHBS2007US09047

PATIENT
  Age: 32 Year
  Sex: Male

DRUGS (4)
  1. BACLOFEN [Suspect]
     Indication: MUSCLE SPASMS
     Dosage: 10 MG, BID
     Route: 048
  2. ANTIBIOTICS [Concomitant]
     Indication: TETANUS
  3. OLANZAPINE [Concomitant]
     Dosage: 10 MG/DAY
     Route: 065
  4. NSAID'S [Concomitant]

REACTIONS (5)
  - AGITATION [None]
  - DELUSION [None]
  - HALLUCINATION, AUDITORY [None]
  - PSYCHOTIC DISORDER [None]
  - SOCIAL AVOIDANT BEHAVIOUR [None]
